FAERS Safety Report 7521825-X (Version None)
Quarter: 2011Q2

REPORT INFORMATION
  Report Type: 
  Country: None (occurrence: None)
  Receive Date: 20110603
  Receipt Date: 20110527
  Transmission Date: 20111010
  Serious: Yes (Hospitalization, Other)
  Sender: FDA-Public Use
  Company Number: US-B.I. PHARMACEUTICALS,INC./RIDGEFIELD-2011-BP-05261BP

PATIENT
  Age: 87 Year
  Sex: Female
  Weight: 43 kg

DRUGS (4)
  1. TRAMADOL HYDROCHLORIDE [Concomitant]
     Dates: start: 20100101
  2. PRADAXA [Suspect]
     Indication: ATRIAL FIBRILLATION
     Dosage: 300 MG
     Route: 048
     Dates: start: 20101115, end: 20110214
  3. RAMIPRIL [Concomitant]
     Dates: start: 20090101
  4. METOPROLOL TARTRATE [Concomitant]
     Dates: start: 20090101

REACTIONS (5)
  - MASS [None]
  - PALLOR [None]
  - GASTRIC CANCER [None]
  - GASTROINTESTINAL HAEMORRHAGE [None]
  - DYSPEPSIA [None]
